FAERS Safety Report 14209873 (Version 2)
Quarter: 2018Q1

REPORT INFORMATION
  Report Type: Spontaneous
  Country: US (occurrence: US)
  Receive Date: 20171121
  Receipt Date: 20180130
  Transmission Date: 20180508
  Serious: Yes (Other)
  Sender: FDA-Public Use
  Company Number: US-PFIZER INC-2017501921

PATIENT
  Age: 66 Year
  Sex: Female

DRUGS (1)
  1. NEURONTIN [Suspect]
     Active Substance: GABAPENTIN
     Dosage: UNK
     Dates: end: 2011

REACTIONS (6)
  - Drug hypersensitivity [Unknown]
  - Dysuria [Unknown]
  - Dysphagia [Unknown]
  - Weight increased [Unknown]
  - Laryngeal oedema [Unknown]
  - Rash [Unknown]
